FAERS Safety Report 5283315-7 (Version None)
Quarter: 2007Q1

REPORT INFORMATION
  Report Type: 
  Country: None (occurrence: None)
  Receive Date: 20070328
  Receipt Date: 20070328
  Transmission Date: 20070707
  Serious: No
  Sender: FDA-Public Use
  Company Number: None

PATIENT
  Sex: Female
  Weight: 21 kg

DRUGS (5)
  1. WINRHO [Suspect]
     Indication: IDIOPATHIC THROMBOCYTOPENIC PURPURA
     Dosage: 1500MCG IV X 1
     Route: 042
     Dates: start: 20060816
  2. ZYRTEC [Concomitant]
  3. IMURAN [Concomitant]
  4. MONTHLY IVIG [Concomitant]
  5. ORAPRED [Concomitant]

REACTIONS (2)
  - CHILLS [None]
  - HEADACHE [None]
